FAERS Safety Report 19580001 (Version 4)
Quarter: 2021Q3

REPORT INFORMATION
  Report Type: Spontaneous
  Country: DE (occurrence: DE)
  Receive Date: 20210720
  Receipt Date: 20210909
  Transmission Date: 20211014
  Serious: Yes (Other)
  Sender: FDA-Public Use
  Company Number: DE-AUROBINDO-AUR-APL-2021-030469

PATIENT
  Sex: Female
  Weight: 40 kg

DRUGS (3)
  1. LEVETIRACETAM AUROBINDO 500MG FILM?COATED TABLETS [Suspect]
     Active Substance: LEVETIRACETAM
     Indication: EPILEPSY
     Dosage: 1 DOSAGE FORM,(ONE TABLET) TWO TIMES A DAY
     Route: 048
     Dates: start: 202105
  2. LEVETIRACETAM AUROBINDO 1000MG FILM?COATED TABLETS [Suspect]
     Active Substance: LEVETIRACETAM
     Indication: EPILEPSY
     Dosage: 1 DOSAGE FORM, ONCE A DAY (IN THE EVENING)
     Route: 048
     Dates: start: 20210710, end: 20210710
  3. LEVETIRACETAM AUROBINDO 500MG FILM?COATED TABLETS [Suspect]
     Active Substance: LEVETIRACETAM
     Dosage: 2 DOSAGE FORM, TWO TIMES A DAY
     Route: 048
     Dates: start: 202106

REACTIONS (2)
  - Epilepsy [Recovered/Resolved]
  - Drug ineffective [Unknown]

NARRATIVE: CASE EVENT DATE: 2021
